FAERS Safety Report 7487189-5 (Version None)
Quarter: 2011Q2

REPORT INFORMATION
  Report Type: 
  Country: None (occurrence: None)
  Receive Date: 20110518
  Receipt Date: 20110418
  Transmission Date: 20111010
  Serious: Yes (Hospitalization, Other)
  Sender: FDA-Public Use
  Company Number: US-BAYER-200939678NA

PATIENT
  Age: 39 Year
  Sex: Female
  Weight: 108.84 kg

DRUGS (2)
  1. YASMIN [Suspect]
     Indication: ORAL CONTRACEPTION
     Dosage: 3 MG OF DROSPIRENONE AND 0.03 MG OF ETHINYL ESTRADIOL
     Route: 048
     Dates: start: 20070901, end: 20071101
  2. ACIPHEX [Concomitant]
     Dosage: UNK
     Dates: end: 20071130

REACTIONS (7)
  - INJURY [None]
  - CHOLECYSTITIS CHRONIC [None]
  - ABDOMINAL PAIN [None]
  - CHOLECYSTECTOMY [None]
  - CHOLEDOCHOLITHOTOMY [None]
  - ORGAN FAILURE [None]
  - BILE DUCT OBSTRUCTION [None]
